FAERS Safety Report 4497476-0 (Version None)
Quarter: 2004Q4

REPORT INFORMATION
  Report Type: 
  Country: None (occurrence: None)
  Receive Date: 20041104
  Receipt Date: 20041101
  Transmission Date: 20050328
  Serious: Yes (Other)
  Sender: FDA-Public Use
  Company Number: THQ2004A00311

PATIENT
  Sex: Female

DRUGS (1)
  1. PROSTAP SR (LEUPROLIDE ACETATE) [Suspect]
     Indication: ENDOMETRIOSIS

REACTIONS (2)
  - DEAFNESS UNILATERAL [None]
  - TINNITUS [None]
